FAERS Safety Report 4604448-1 (Version None)
Quarter: 2005Q2

REPORT INFORMATION
  Report Type: 
  Country: None (occurrence: None)
  Receive Date: 20050215
  Receipt Date: 20041202
  Transmission Date: 20051028
  Serious: Yes (Disabling)
  Sender: FDA-Public Use
  Company Number: 368202

PATIENT
  Age: 50 Year
  Sex: Male
  Weight: 102.1 kg

DRUGS (4)
  1. PEGASYS [Suspect]
     Indication: HEPATITIS C VIRUS
     Dosage: 180 MCG  1 PER WEEK SUBCUTANEOUS
     Route: 058
     Dates: start: 20040429
  2. COPEGUS [Suspect]
     Indication: HEPATITIS C VIRUS
     Dosage: 4 DOSE FORM DAILY  ORAL
     Route: 048
     Dates: start: 20040429
  3. NEXIUM [Concomitant]
  4. LACTULOSE [Concomitant]

REACTIONS (14)
  - ANGER [None]
  - ANOREXIA [None]
  - BRONCHITIS [None]
  - CHILLS [None]
  - DEPRESSED MOOD [None]
  - DEPRESSION [None]
  - ENZYME ABNORMALITY [None]
  - HYPERHIDROSIS [None]
  - INSOMNIA [None]
  - MOOD SWINGS [None]
  - PYREXIA [None]
  - TREMOR [None]
  - WEIGHT DECREASED [None]
  - WHITE BLOOD CELL COUNT DECREASED [None]
